FAERS Safety Report 14142714 (Version 3)
Quarter: 2018Q1

REPORT INFORMATION
  Report Type: Report from Study
  Country: JP (occurrence: JP)
  Receive Date: 20171030
  Receipt Date: 20180307
  Transmission Date: 20180508
  Serious: Yes (Other)
  Sender: FDA-Public Use
  Company Number: JP-UCBSA-2016037700

PATIENT
  Age: 25 Year
  Sex: Female

DRUGS (11)
  1. CERTOLIZUMAB PEGOL RA [Suspect]
     Active Substance: CERTOLIZUMAB PEGOL
     Indication: RHEUMATOID ARTHRITIS
     Dosage: 400 MG, EV 2 WEEKS(QOW)
     Route: 058
     Dates: start: 20150325, end: 20150422
  2. RIMATIL [Concomitant]
     Active Substance: BUCILLAMINE
     Indication: RHEUMATOID ARTHRITIS
     Dosage: 200 MG, ONCE DAILY (QD)
     Route: 048
     Dates: end: 20150408
  3. RIMATIL [Concomitant]
     Active Substance: BUCILLAMINE
     Dosage: 100 MG, ONCE DAILY (QD)
     Route: 048
     Dates: start: 20150409, end: 20150602
  4. RIMATIL [Concomitant]
     Active Substance: BUCILLAMINE
     Dosage: 200 MG, ONCE DAILY (QD)
     Route: 048
     Dates: start: 20150728, end: 20150901
  5. METOLATE [Suspect]
     Active Substance: METHOTREXATE
     Dosage: 4 MG, WEEKLY (QW)
     Route: 048
     Dates: start: 20151218, end: 20160726
  6. METOLATE [Suspect]
     Active Substance: METHOTREXATE
     Indication: RHEUMATOID ARTHRITIS
     Dosage: 6 MG, WEEKLY (QW)
     Route: 048
     Dates: start: 20150902, end: 20151217
  7. METOLATE [Suspect]
     Active Substance: METHOTREXATE
     Dosage: 2 MG, WEEKLY (QW)
     Route: 048
     Dates: start: 20160727, end: 20170221
  8. CERTOLIZUMAB PEGOL RA [Suspect]
     Active Substance: CERTOLIZUMAB PEGOL
     Dosage: 200 MG, EV 2 WEEKS(QOW)
     Route: 058
     Dates: start: 20150506, end: 20150714
  9. FOLIAMIN [Concomitant]
     Active Substance: FOLIC ACID
     Indication: PROPHYLAXIS
     Dosage: 5 MG, WEEKLY (QW)
  10. CERTOLIZUMAB PEGOL RA [Suspect]
     Active Substance: CERTOLIZUMAB PEGOL
     Dosage: 200 MG, EV 2 WEEKS(QOW)
     Route: 058
     Dates: start: 20150721, end: 20170620
  11. CELECOX [Concomitant]
     Active Substance: CELECOXIB
     Indication: RHEUMATOID ARTHRITIS
     Dosage: 400 MG, ONCE DAILY (QD)
     Route: 048
     Dates: end: 20150930

REACTIONS (2)
  - Psoriasis [Recovering/Resolving]
  - Hepatic function abnormal [Recovering/Resolving]

NARRATIVE: CASE EVENT DATE: 20151218
